FAERS Safety Report 7272417-1 (Version None)
Quarter: 2011Q1

REPORT INFORMATION
  Report Type: 
  Country: None (occurrence: None)
  Receive Date: 20110203
  Receipt Date: 20101213
  Transmission Date: 20110831
  Serious: Yes (Other)
  Sender: FDA-Public Use
  Company Number: US-BAYER-201040327NA

PATIENT
  Sex: Female
  Weight: 80.726 kg

DRUGS (1)
  1. MIRENA [Suspect]
     Indication: CONTRACEPTION
     Dosage: 20 MCG/24HR, CONT
     Route: 015
     Dates: start: 20100105, end: 20100907

REACTIONS (3)
  - UTERINE PERFORATION [None]
  - DEVICE DISLOCATION [None]
  - HAEMORRHAGE [None]
